FAERS Safety Report 6108755-5 (Version None)
Quarter: 2009Q1

REPORT INFORMATION
  Report Type: 
  Country: None (occurrence: None)
  Receive Date: 20090309
  Receipt Date: 20090309
  Transmission Date: 20090719
  Serious: No
  Sender: FDA-Public Use
  Company Number: None

PATIENT
  Age: 69 Year
  Sex: Female
  Weight: 93.441 kg

DRUGS (1)
  1. CHANTIX [Suspect]
     Indication: SMOKING CESSATION THERAPY
     Dates: start: 20080102, end: 20080402

REACTIONS (13)
  - ABDOMINAL PAIN [None]
  - AMNESIA [None]
  - CONSTIPATION [None]
  - DYSGEUSIA [None]
  - FLATULENCE [None]
  - GASTRITIS [None]
  - HEADACHE [None]
  - INCREASED APPETITE [None]
  - INSOMNIA [None]
  - LETHARGY [None]
  - RHINORRHOEA [None]
  - VOMITING [None]
  - WEIGHT INCREASED [None]
